FAERS Safety Report 8403183-1 (Version None)
Quarter: 2012Q2

REPORT INFORMATION
  Report Type: 
  Country: None (occurrence: None)
  Receive Date: 20120601
  Receipt Date: 20120522
  Transmission Date: 20120825
  Serious: Yes (Life-Threatening, Hospitalization)
  Sender: FDA-Public Use
  Company Number: US-JNJFOC-20120518758

PATIENT
  Age: 63 Year
  Sex: Male

DRUGS (4)
  1. DONEPEZIL HCL [Interacting]
     Indication: DEMENTIA
     Route: 065
  2. GALANTAMINE HYDROBROMIDE [Suspect]
     Route: 065
  3. GALANTAMINE HYDROBROMIDE [Suspect]
     Indication: DEMENTIA
     Dosage: REDUCED TO A LOWER DOSE
     Route: 065
  4. GALANTAMINE HYDROBROMIDE [Suspect]
     Dosage: INCREASED TO A MID DOSE
     Route: 065

REACTIONS (2)
  - POST-TRAUMATIC STRESS DISORDER [None]
  - DRUG INTERACTION [None]
